FAERS Safety Report 17715872 (Version 2)
Quarter: 2020Q2

REPORT INFORMATION
  Report Type: Report from Study
  Country: None (occurrence: US)
  Receive Date: 20200428
  Receipt Date: 20200619
  Transmission Date: 20200714
  Serious: Yes (Other)
  Sender: FDA-Public Use
  Company Number: US-ABBVIE-20K-163-3372040-00

PATIENT
  Age: 61 Year
  Sex: Male
  Weight: 88.53 kg

DRUGS (4)
  1. IMODIUM [Concomitant]
     Active Substance: LOPERAMIDE HYDROCHLORIDE
     Indication: GASTROINTESTINAL DISORDER
  2. FAMOTIDINE. [Concomitant]
     Active Substance: FAMOTIDINE
     Indication: GASTROINTESTINAL DISORDER
  3. HUMIRA [Suspect]
     Active Substance: ADALIMUMAB
     Indication: CROHN^S DISEASE
     Route: 058
     Dates: start: 201811, end: 202003
  4. HUMIRA [Suspect]
     Active Substance: ADALIMUMAB
     Route: 058
     Dates: start: 202003

REACTIONS (5)
  - Hernia [Not Recovered/Not Resolved]
  - Central venous catheter removal [Recovering/Resolving]
  - Intestinal ulcer [Not Recovered/Not Resolved]
  - Drug ineffective [Unknown]
  - Stoma closure [Unknown]

NARRATIVE: CASE EVENT DATE: 201912
